FAERS Safety Report 20680341 (Version 1)
Quarter: 2022Q2

REPORT INFORMATION
  Report Type: Spontaneous
  Country: BR (occurrence: BR)
  Receive Date: 20220406
  Receipt Date: 20220406
  Transmission Date: 20220721
  Serious: Yes (Other)
  Sender: FDA-Public Use
  Company Number: BR-DSJP-DSE-2022-111019

PATIENT
  Sex: Male

DRUGS (13)
  1. EDOXABAN TOSYLATE [Suspect]
     Active Substance: EDOXABAN TOSYLATE
     Indication: Cerebrovascular accident prophylaxis
     Dosage: 30 MG, QD
     Route: 065
  2. ATORVASTATIN CALCIUM [Concomitant]
     Active Substance: ATORVASTATIN CALCIUM
     Indication: Blood cholesterol abnormal
     Dosage: 20 MG, QD
     Route: 065
  3. ZART [Concomitant]
     Indication: Blood pressure management
     Dosage: 50 MG, BID
     Route: 065
  4. CARVEDILOL [Concomitant]
     Active Substance: CARVEDILOL
     Indication: Cardiac disorder
     Dosage: 25 MG, BID
     Route: 065
  5. CORDAREX [AMLODIPINE BESILATE] [Concomitant]
     Indication: Blood pressure management
     Dosage: 5 MG, QD
     Route: 065
  6. FUROSEMIDE [Concomitant]
     Active Substance: FUROSEMIDE
     Indication: Diuretic therapy
     Dosage: 40 MG, QD
     Route: 065
  7. FUROSEMIDE [Concomitant]
     Active Substance: FUROSEMIDE
     Indication: Renal disorder
  8. ASPIRIN [Concomitant]
     Active Substance: ASPIRIN
     Indication: Blood disorder
     Dosage: 100 MG, QD
     Route: 065
  9. DIOSMIN [Concomitant]
     Active Substance: DIOSMIN
     Indication: Limb injury
     Dosage: 500 MG, QD
     Route: 065
  10. CLOBAZAM [Concomitant]
     Active Substance: CLOBAZAM
     Indication: Nervous system disorder
     Dosage: 10 MG, QD
     Route: 065
  11. RISPERIDONE [Concomitant]
     Active Substance: RISPERIDONE
     Indication: Nervous system disorder
     Dosage: 1 MG, BID
     Route: 065
  12. PHENYTOIN SODIUM [Concomitant]
     Active Substance: PHENYTOIN SODIUM
     Indication: Nervous system disorder
     Dosage: 100 MG, BID
     Route: 065
  13. ALLOPURINOL [Concomitant]
     Active Substance: ALLOPURINOL
     Indication: Renal disorder
     Dosage: 100 MG, QD
     Route: 065

REACTIONS (1)
  - Prostate cancer [Not Recovered/Not Resolved]
